FAERS Safety Report 6392036-9 (Version None)
Quarter: 2009Q4

REPORT INFORMATION
  Report Type: 
  Country: None (occurrence: None)
  Receive Date: 20091007
  Receipt Date: 20090929
  Transmission Date: 20100525
  Serious: Yes (Hospitalization, Other)
  Sender: FDA-Public Use
  Company Number: US-ROCHE-659733

PATIENT
  Age: 18 Year
  Sex: Female

DRUGS (8)
  1. ZENAPAX [Suspect]
     Dosage: RECEIVED TWO DOSES ON 26 AND 28 DEC 2008
     Route: 065
     Dates: start: 20081223, end: 20081228
  2. ZENAPAX [Suspect]
     Route: 065
     Dates: end: 20090403
  3. ZENAPAX [Suspect]
     Route: 065
     Dates: start: 20090521
  4. ZENAPAX [Suspect]
     Route: 065
  5. PENTOSTATIN [Suspect]
     Indication: DRUG USE FOR UNKNOWN INDICATION
     Route: 065
     Dates: start: 20081229, end: 20081231
  6. PENTOSTATIN [Suspect]
     Route: 065
     Dates: end: 20090214
  7. CYCLOSPORINE [Concomitant]
  8. PREDNISONE [Concomitant]
     Route: 048

REACTIONS (3)
  - ACUTE GRAFT VERSUS HOST DISEASE IN SKIN [None]
  - BONE MARROW FAILURE [None]
  - DIARRHOEA [None]
